FAERS Safety Report 8261308-5 (Version None)
Quarter: 2012Q2

REPORT INFORMATION
  Report Type: 
  Country: None (occurrence: None)
  Receive Date: 20120405
  Receipt Date: 20120328
  Transmission Date: 20120825
  Serious: Yes (Hospitalization)
  Sender: FDA-Public Use
  Company Number: US-BAYER-2011-052343

PATIENT
  Age: 26 Year
  Sex: Female
  Weight: 139.23 kg

DRUGS (4)
  1. YASMIN [Suspect]
     Indication: CONTRACEPTION
     Dosage: UNK
     Dates: start: 20070101, end: 20090301
  2. DROSPIRENONE AND ETHINYL ESTRADIOL [Suspect]
     Dosage: UNK
     Dates: start: 20060101, end: 20100101
  3. DROSPIRENONE AND ETHINYL ESTRADIOL [Suspect]
     Indication: CONTRACEPTION
     Dosage: UNK
     Dates: start: 20070101, end: 20090301
  4. YASMIN [Suspect]
     Dosage: UNK
     Dates: start: 20060101, end: 20100101

REACTIONS (13)
  - PANCREATITIS [None]
  - DYSPEPSIA [None]
  - ANXIETY [None]
  - PAIN [None]
  - CHOLECYSTECTOMY [None]
  - FLATULENCE [None]
  - DIARRHOEA [None]
  - DEPRESSION [None]
  - INJURY [None]
  - ABDOMINAL DISTENSION [None]
  - SCAR [None]
  - CHOLECYSTITIS ACUTE [None]
  - CONSTIPATION [None]
